FAERS Safety Report 7766642-0 (Version None)
Quarter: 2011Q3

REPORT INFORMATION
  Report Type: 
  Country: None (occurrence: None)
  Receive Date: 20110916
  Receipt Date: 20110906
  Transmission Date: 20111222
  Serious: Yes (Hospitalization)
  Sender: FDA-Public Use
  Company Number: 1000021948

PATIENT
  Age: 42 Year
  Sex: Female

DRUGS (22)
  1. LYRICA (PREGABALIN) (CAPSULES) (PREGABALIN) [Concomitant]
  2. ZOFRAN ODT (ONDANSETRON) (TABLETS) (ONDANSETRON) [Concomitant]
  3. PREMARIN (ESTROGENS CONJUGATED) (TABLETS) (ESTROGENS CONJUGATE) [Concomitant]
  4. PRAZOSIN HCL (PRAZOSIN HYDROCHLORIDE) (CAPSULES) (PRAZOSIN HYDROCHLORI [Concomitant]
  5. PROPRANOLOL HCL CR (PROPRANOLOL) (CAPSULES) (PROPRANOLOL) [Concomitant]
  6. PRISTIQ (DESVENLAFAXINE SUCCINATE) (TABLETS) (DESVENLAFAXINE SUCCINATE [Concomitant]
  7. TIZANIDINE (TIZANIDINE) (4 MILLIGRAM, TABLETS) (TIZANIDINE) [Concomitant]
  8. SAVELLA [Suspect]
     Indication: FIBROMYALGIA
     Dosage: 12.5 MG (12.5 MG, 1 IN 1 D), ORAL
     Route: 048
     Dates: start: 20110527, end: 20110527
  9. NEXIUM (ESOMEPRAZOLE) (CAPSULES) (ESOMEPRAZOLE) [Concomitant]
  10. TYLENOL (ACETAMINOPHEN) (TABLETS) (ACETAMINOPHEN) [Concomitant]
  11. GABAPENTIN (GABAPENTIN) (600 MILLIGRAM, TABLETS) (GABAPENTIN) [Concomitant]
  12. MAXALT-MLT (RIZATRIPTAN BENZOATE) (TABLETS) (RIZATRIPTAN BENZOATE) [Concomitant]
  13. MORTRIPTYLINE HCL (NORTRIPTYLINE HYDROCHLORIDE) (25 MILLIGRAM, CAPSULE [Concomitant]
  14. PRILOSEC (OMEPRAZOLE) (CAPSULES) (OMEPRAZOLE) [Concomitant]
  15. SAVELLA [Suspect]
     Indication: FIBROMYALGIA
     Dosage: 100 MG (50 MG, 2 IN 1 D), ORAL
     Route: 048
     Dates: start: 20110603, end: 20110705
  16. KLONOPIN (CLONAZEPAM) (TABLETS) (CLONAZEPAM) [Concomitant]
  17. SUBOXONE (BUPRENORPHINE, NALOXONE) (TABLETS) (BUPRENORPHINE, NALOXONE) [Concomitant]
  18. BUMEX (BUMETANIDE) (TABLETS) (BUMETANIDE) [Concomitant]
  19. PERCOCET (OXYCODONE, ACETAMINOPHEN) (TABLETS) (OXYCODONE, ACETAMINOPHE [Concomitant]
  20. ABILIFY (ARIPIPRAZOLE) (TABLETS) (ARIPIPRAZOLE) [Concomitant]
  21. SEROQUEL (QUETIAPINE FUMARATE) (TABLETS) (QUETIAPINE FUMARATE) [Concomitant]
  22. CELEXA (CITALOPRAM HYDROBROMIDE) (TABLETS) (CITALOPRAM HYDROBROMIDE) [Concomitant]

REACTIONS (10)
  - LIVER FUNCTION TEST ABNORMAL [None]
  - BLOOD GLUCOSE INCREASED [None]
  - HIATUS HERNIA [None]
  - ALANINE AMINOTRANSFERASE INCREASED [None]
  - MICROLITHIASIS [None]
  - BLOOD BILIRUBIN INCREASED [None]
  - BLOOD ALBUMIN DECREASED [None]
  - ASPARTATE AMINOTRANSFERASE INCREASED [None]
  - PANCREATITIS ACUTE [None]
  - HEPATIC LESION [None]
